FAERS Safety Report 20557313 (Version 1)
Quarter: 2022Q1

REPORT INFORMATION
  Report Type: Spontaneous
  Country: GB (occurrence: GB)
  Receive Date: 20220307
  Receipt Date: 20220307
  Transmission Date: 20220423
  Serious: Yes (Death, Hospitalization, Other)
  Sender: FDA-Public Use
  Company Number: None

PATIENT
  Age: 93 Year
  Sex: Male

DRUGS (9)
  1. DALTEPARIN SODIUM [Suspect]
     Active Substance: DALTEPARIN SODIUM
     Dosage: 5000 IU, DAILY (5,000UNITS/0.2ML)
  2. DALTEPARIN SODIUM [Suspect]
     Active Substance: DALTEPARIN SODIUM
     Dosage: 5000 IU, DAILY (5,000UNITS/0.2ML)
     Dates: start: 20211218
  3. SERTRALINE [Suspect]
     Active Substance: SERTRALINE HYDROCHLORIDE
  4. SERTRALINE [Suspect]
     Active Substance: SERTRALINE HYDROCHLORIDE
     Dosage: 50 UNK
  5. DICLOFENAC [Concomitant]
     Active Substance: DICLOFENAC
     Dosage: 1 DF, AS NEEDED
  6. FEXOFENADINE [Concomitant]
     Active Substance: FEXOFENADINE HYDROCHLORIDE
     Dosage: EVERY MORNING
  7. FUROSEMIDE [Concomitant]
     Active Substance: FUROSEMIDE
     Dosage: EVERY MORNING
  8. OMEPRAZOLE [Concomitant]
     Active Substance: OMEPRAZOLE
  9. SODIUM HYALURONATE [Concomitant]
     Active Substance: HYALURONATE SODIUM

REACTIONS (6)
  - Myelodysplastic syndrome [Fatal]
  - Asthenia [Fatal]
  - Pneumonia [Fatal]
  - COVID-19 [Fatal]
  - Haematuria [Not Recovered/Not Resolved]
  - Melaena [Not Recovered/Not Resolved]

NARRATIVE: CASE EVENT DATE: 20211216
